FAERS Safety Report 15958532 (Version 1)
Quarter: 2019Q1

REPORT INFORMATION
  Report Type: Spontaneous
  Country: GR (occurrence: GR)
  Receive Date: 20190213
  Receipt Date: 20190213
  Transmission Date: 20190417
  Serious: Yes (Other)
  Sender: FDA-Public Use
  Company Number: GR-MYLANLABS-2019M1013646

PATIENT
  Age: 14 Year
  Sex: Male

DRUGS (2)
  1. CARBAMAZEPINE. [Suspect]
     Active Substance: CARBAMAZEPINE
     Indication: FRONTAL LOBE EPILEPSY
     Route: 065
  2. LACOSAMIDE. [Suspect]
     Active Substance: LACOSAMIDE
     Indication: FRONTAL LOBE EPILEPSY
     Route: 065

REACTIONS (2)
  - Frontal lobe epilepsy [Recovering/Resolving]
  - Condition aggravated [Recovering/Resolving]
